FAERS Safety Report 6135398-X (Version None)
Quarter: 2009Q1

REPORT INFORMATION
  Report Type: 
  Country: None (occurrence: None)
  Receive Date: 20090327
  Receipt Date: 20090316
  Transmission Date: 20090719
  Serious: Yes (Hospitalization)
  Sender: FDA-Public Use
  Company Number: DK-ELI_LILLY_AND_COMPANY-DK200901005511

PATIENT
  Sex: Female

DRUGS (7)
  1. FORTEO [Suspect]
     Indication: OSTEOPOROSIS
     Dosage: 20 UG, DAILY (1/D)
     Route: 065
     Dates: start: 20080121, end: 20080803
  2. SIMVASTATIN [Concomitant]
     Dosage: 40 MG, DAILY (1/D)
     Route: 065
  3. METFORMIN [Concomitant]
     Dosage: 500 MG, 2/D
     Route: 065
  4. MIRTAZAPINE [Concomitant]
     Dosage: 15 MG, DAILY (1/D)
     Route: 065
  5. ASPIRIN [Concomitant]
     Dosage: 75 MG, DAILY (1/D)
     Route: 065
  6. ZOPICLON [Concomitant]
     Dosage: 75 MG, AS NEEDED
     Route: 065
  7. BROMAZEPAM [Concomitant]
     Dosage: 1.5 MG, AS NEEDED
     Route: 065

REACTIONS (2)
  - ABDOMINAL PAIN [None]
  - IDIOPATHIC THROMBOCYTOPENIC PURPURA [None]
